FAERS Safety Report 5753242-7 (Version None)
Quarter: 2008Q2

REPORT INFORMATION
  Report Type: 
  Country: None (occurrence: None)
  Receive Date: 20080530
  Receipt Date: 20070525
  Transmission Date: 20081010
  Serious: No
  Sender: FDA-Public Use
  Company Number: A0653015A

PATIENT
  Sex: Male

DRUGS (3)
  1. VENTOLIN [Suspect]
     Indication: RESPIRATORY SYNCYTIAL VIRUS INFECTION
     Dosage: 1PUFF FOUR TIMES PER DAY
     Route: 055
     Dates: start: 20060521
  2. SINGULAIR [Concomitant]
  3. CLARINEX [Concomitant]

REACTIONS (3)
  - COUGH [None]
  - DYSPNOEA [None]
  - EXPIRED DRUG ADMINISTERED [None]
